FAERS Safety Report 19628211 (Version 1)
Quarter: 2021Q3

REPORT INFORMATION
  Report Type: Spontaneous
  Country: US (occurrence: US)
  Receive Date: 20210728
  Receipt Date: 20210728
  Transmission Date: 20211014
  Serious: No
  Sender: FDA-Public Use
  Company Number: US-PFIZER INC-2021821081

PATIENT
  Age: 72 Year
  Sex: Female

DRUGS (2)
  1. PHENYTOIN. [Suspect]
     Active Substance: PHENYTOIN
     Indication: SEIZURE
  2. PHENYTOIN. [Suspect]
     Active Substance: PHENYTOIN
     Indication: IDIOPATHIC PARTIAL EPILEPSY
     Dosage: UNK

REACTIONS (3)
  - Nausea [Unknown]
  - Drug ineffective [Unknown]
  - Abdominal pain [Unknown]
